FAERS Safety Report 8421191-1 (Version None)
Quarter: 2012Q2

REPORT INFORMATION
  Report Type: 
  Country: None (occurrence: None)
  Receive Date: 20120608
  Receipt Date: 20120605
  Transmission Date: 20120825
  Serious: Yes (Death)
  Sender: FDA-Public Use
  Company Number: US-JNJFOC-20120510904

PATIENT
  Sex: Female

DRUGS (3)
  1. REOPRO [Suspect]
     Indication: THROMBOSIS
     Dosage: STANDARD DOSE, UNIT AND FREQUENCY
     Route: 042
  2. HEPARIN [Suspect]
     Indication: ACUTE MYOCARDIAL INFARCTION
     Dosage: 4000 UNITS IN EMERGENCY ROOM, 2000 UNITS IN CARDIAC LAB AT END
     Route: 065
  3. ASPIRIN [Concomitant]
     Route: 065

REACTIONS (2)
  - CEREBRAL HAEMORRHAGE [None]
  - PUNCTURE SITE HAEMORRHAGE [None]
